FAERS Safety Report 24941084 (Version 1)
Quarter: 2025Q1

REPORT INFORMATION
  Report Type: Spontaneous
  Country: CN (occurrence: CN)
  Receive Date: 20250207
  Receipt Date: 20250207
  Transmission Date: 20250408
  Serious: Yes (Other)
  Sender: ROCHE
  Company Number: CN-ROCHE-10000199694

PATIENT
  Age: 58 Year
  Sex: Male

DRUGS (7)
  1. BEVACIZUMAB [Suspect]
     Active Substance: BEVACIZUMAB
     Indication: Hepatocellular carcinoma
     Route: 065
     Dates: start: 20210409
  2. RIVOCERANIB [Suspect]
     Active Substance: RIVOCERANIB
     Indication: Hepatocellular carcinoma
     Route: 048
     Dates: start: 20210409
  3. CAMRELIZUMAB [Suspect]
     Active Substance: CAMRELIZUMAB
     Indication: Hepatocellular carcinoma
     Route: 065
     Dates: start: 20210409
  4. TEGAFUR [Suspect]
     Active Substance: TEGAFUR
     Indication: Hepatocellular carcinoma
     Route: 065
     Dates: start: 20210409
  5. VITAMIN C [Concomitant]
     Active Substance: ASCORBIC ACID
  6. ENTECAVIR [Concomitant]
     Active Substance: ENTECAVIR
  7. DONAFENIB [Concomitant]
     Active Substance: DONAFENIB

REACTIONS (2)
  - Anaemia [Unknown]
  - Thrombocytopenia [Unknown]
